FAERS Safety Report 7678774-6 (Version None)
Quarter: 2011Q3

REPORT INFORMATION
  Report Type: 
  Country: None (occurrence: None)
  Receive Date: 20110811
  Receipt Date: 20110802
  Transmission Date: 20111222
  Serious: Yes (Disabling, Other)
  Sender: FDA-Public Use
  Company Number: KR-ASTRAZENECA-2011SE46167

PATIENT

DRUGS (2)
  1. LIDOCAINE [Suspect]
     Route: 053
  2. BUPIVACAINE HCL [Suspect]
     Route: 053

REACTIONS (2)
  - CONVULSION [None]
  - BLINDNESS [None]
